FAERS Safety Report 5083725-7 (Version None)
Quarter: 2006Q3

REPORT INFORMATION
  Report Type: 
  Country: None (occurrence: None)
  Receive Date: 20060818
  Receipt Date: 20060724
  Transmission Date: 20061208
  Serious: Yes (Death, Hospitalization, Other)
  Sender: FDA-Public Use
  Company Number: US-AMGEN-US187688

PATIENT
  Sex: Female

DRUGS (24)
  1. ENBREL [Suspect]
     Indication: RHEUMATOID ARTHRITIS
     Route: 058
     Dates: start: 20000501, end: 20060206
  2. METHOTREXATE [Concomitant]
     Route: 065
     Dates: start: 19990101
  3. POTASSIUM [Concomitant]
  4. NEURONTIN [Concomitant]
  5. TOPROL-XL [Concomitant]
  6. MAGNESIUM [Concomitant]
  7. NEXIUM [Concomitant]
  8. OSCAL [Concomitant]
  9. VITAMIN D [Concomitant]
  10. PREDNISONE [Concomitant]
  11. MAXZIDE [Concomitant]
  12. COZAAR [Concomitant]
  13. TOPROL-XL [Concomitant]
  14. ALDACTONE [Concomitant]
  15. CITRUCEL [Concomitant]
  16. DESITIN [Concomitant]
  17. K-DUR 10 [Concomitant]
  18. LOVENOX [Concomitant]
  19. PROTONIX [Concomitant]
  20. QUESTRAN [Concomitant]
  21. ROWASA [Concomitant]
  22. ZYVOX [Concomitant]
  23. ASPIRIN [Concomitant]
  24. REGLAN [Concomitant]

REACTIONS (21)
  - ABASIA [None]
  - ANOREXIA [None]
  - ASTHENIA [None]
  - BRONCHIECTASIS [None]
  - BRONCHITIS [None]
  - CARDIAC ARREST [None]
  - DIARRHOEA [None]
  - DYSPNOEA [None]
  - HYPERTENSION [None]
  - HYPOTENSION [None]
  - HYPOXIA [None]
  - IMMUNOSUPPRESSION [None]
  - LEUKOCYTOSIS [None]
  - LUNG SQUAMOUS CELL CARCINOMA STAGE UNSPECIFIED [None]
  - METABOLIC ACIDOSIS [None]
  - NAUSEA [None]
  - PNEUMONIA [None]
  - PULMONARY FIBROSIS [None]
  - SEPSIS SYNDROME [None]
  - STAPHYLOCOCCAL INFECTION [None]
  - TACHYCARDIA [None]
